FAERS Safety Report 22928396 (Version 2)
Quarter: 2023Q4

REPORT INFORMATION
  Report Type: Spontaneous
  Country: JP (occurrence: JP)
  Receive Date: 20230911
  Receipt Date: 20231002
  Transmission Date: 20240110
  Serious: Yes (Hospitalization, Other)
  Sender: FDA-Public Use
  Company Number: JP-KYOWAKIRIN-2023KK013776

PATIENT

DRUGS (1)
  1. ISTRADEFYLLINE [Suspect]
     Active Substance: ISTRADEFYLLINE
     Indication: Product used for unknown indication
     Dosage: 40 MG
     Route: 048

REACTIONS (3)
  - Renal impairment [Unknown]
  - Hospitalisation [Unknown]
  - Dysphagia [Unknown]
